FAERS Safety Report 20919492 (Version 1)
Quarter: 2022Q2

REPORT INFORMATION
  Report Type: Spontaneous
  Country: US (occurrence: None)
  Receive Date: 20220601
  Receipt Date: 20220601
  Transmission Date: 20220721
  Serious: Yes (Hospitalization, Disabling)
  Sender: FDA-Public Use
  Company Number: None

PATIENT
  Age: 82 Year
  Sex: Male
  Weight: 86.18 kg

DRUGS (8)
  1. RESTORIL [Suspect]
     Active Substance: TEMAZEPAM
     Indication: Agitation
     Route: 048
     Dates: start: 20220309, end: 20220310
  2. RESTORIL [Suspect]
     Active Substance: TEMAZEPAM
     Indication: Behaviour disorder
  3. LEVOTHYROXINE [Concomitant]
  4. METOPROLOL [Concomitant]
  5. WARFARIN [Concomitant]
  6. ATORVASTATIN [Concomitant]
  7. VITAMIN C [Concomitant]
     Active Substance: ASCORBIC ACID
  8. FISH OIL [Concomitant]

REACTIONS (2)
  - Illusion [None]
  - Hallucination [None]

NARRATIVE: CASE EVENT DATE: 20220309
